FAERS Safety Report 18333115 (Version 1)
Quarter: 2020Q4

REPORT INFORMATION
  Report Type: Spontaneous
  Country: FR (occurrence: FR)
  Receive Date: 20201001
  Receipt Date: 20201001
  Transmission Date: 20210113
  Serious: Yes (Death)
  Sender: FDA-Public Use
  Company Number: FR-TEVA-2020-FR-1832551

PATIENT
  Age: 51 Year
  Sex: Male

DRUGS (1)
  1. PREGABALINE [Suspect]
     Active Substance: PREGABALIN
     Route: 065

REACTIONS (5)
  - Agitation [Fatal]
  - Coma [Fatal]
  - Oxygen therapy [Fatal]
  - Venous oxygen saturation decreased [Fatal]
  - Cardio-respiratory arrest [Fatal]
